FAERS Safety Report 24114757 (Version 2)
Quarter: 2024Q3

REPORT INFORMATION
  Report Type: Spontaneous
  Country: IR (occurrence: IR)
  Receive Date: 20240721
  Receipt Date: 20240723
  Transmission Date: 20241017
  Serious: Yes (Hospitalization)
  Sender: STRIDES
  Company Number: None

PATIENT
  Age: 14 Year
  Sex: Female

DRUGS (8)
  1. VANCOMYCIN [Suspect]
     Active Substance: VANCOMYCIN
     Indication: Antibiotic therapy
     Dosage: 15 MILLIGRAM/KILOGRAM, EVERY 12 HRS
     Route: 065
  2. VANCOMYCIN [Suspect]
     Active Substance: VANCOMYCIN
     Indication: Prophylaxis
  3. MEROPENEM [Suspect]
     Active Substance: MEROPENEM
     Indication: Antibiotic therapy
     Dosage: 2 GRAM, EVERY 8 HRS
     Route: 065
  4. MEROPENEM [Suspect]
     Active Substance: MEROPENEM
     Indication: Prophylaxis
  5. CELLULOSE [Concomitant]
     Active Substance: POWDERED CELLULOSE
     Indication: Procedural haemorrhage
     Dosage: UNK
     Route: 065
  6. GELFOAM [Concomitant]
     Active Substance: DEVICE\GELATIN
     Indication: Procedural haemorrhage
     Dosage: UNK
     Route: 065
  7. Bone wax [Concomitant]
     Indication: Procedural haemorrhage
     Dosage: UNK
     Route: 065
  8. FRESH FROZEN PLASMA [Concomitant]
     Active Substance: HUMAN PLASMA
     Indication: Disseminated intravascular coagulation
     Dosage: UNK
     Route: 065

REACTIONS (5)
  - Tachycardia [Unknown]
  - Hypotension [Unknown]
  - Pruritus [Unknown]
  - Urticaria [Unknown]
  - Hypersensitivity [Unknown]
